FAERS Safety Report 14185431 (Version 5)
Quarter: 2019Q2

REPORT INFORMATION
  Report Type: Report from Study
  Country: CO (occurrence: CO)
  Receive Date: 20171114
  Receipt Date: 20190603
  Transmission Date: 20190711
  Serious: Yes (Other)
  Sender: FDA-Public Use
  Company Number: CO-TAKEDA-2017TUS022249

PATIENT
  Age: 67 Year
  Sex: Male
  Weight: 57 kg

DRUGS (4)
  1. VEDOLIZUMAB [Suspect]
     Active Substance: VEDOLIZUMAB
     Dosage: 300 MILLIGRAM, MONTHLY
     Route: 042
  2. VEDOLIZUMAB [Suspect]
     Active Substance: VEDOLIZUMAB
     Indication: CROHN^S DISEASE
     Dosage: 300 MILLIGRAM
     Route: 042
     Dates: start: 20170727
  3. VEDOLIZUMAB [Suspect]
     Active Substance: VEDOLIZUMAB
     Dosage: 300 MILLIGRAM
     Route: 042
  4. CALCITRIOL. [Concomitant]
     Active Substance: CALCITRIOL
     Dosage: 5 MILLIGRAM, QD

REACTIONS (6)
  - Off label use [Unknown]
  - Haematuria [Not Recovered/Not Resolved]
  - Vomiting [Recovered/Resolved]
  - Influenza [Not Recovered/Not Resolved]
  - Bladder cancer [Unknown]
  - Diarrhoea [Recovered/Resolved]

NARRATIVE: CASE EVENT DATE: 20170925
